FAERS Safety Report 25384971 (Version 2)
Quarter: 2025Q2

REPORT INFORMATION
  Report Type: Report from Study
  Country: US (occurrence: US)
  Receive Date: 20250602
  Receipt Date: 20250617
  Transmission Date: 20250716
  Serious: Yes (Hospitalization)
  Sender: ACADIA PHARMACEUTICALS
  Company Number: US-ACADIA PHARMACEUTICALS INC.-ACA-2025-PIM-006382

PATIENT
  Sex: Female

DRUGS (5)
  1. PIMAVANSERIN [Suspect]
     Active Substance: PIMAVANSERIN
     Indication: Insomnia
     Dosage: 34 MILLIGRAM, QD AT BEDTIME
     Route: 048
  2. INVESTIGATIONAL PRODUCT [Suspect]
     Active Substance: INVESTIGATIONAL PRODUCT
     Indication: Insomnia
     Dosage: 34 MILLIGRAM, QD AT BEDTIME
     Route: 048
  3. PIMAVANSERIN [Suspect]
     Active Substance: PIMAVANSERIN
     Indication: Post-traumatic stress disorder
  4. INVESTIGATIONAL PRODUCT [Suspect]
     Active Substance: INVESTIGATIONAL PRODUCT
     Indication: Post-traumatic stress disorder
  5. INSULIN NOS [Concomitant]
     Active Substance: INSULIN NOS

REACTIONS (1)
  - Latent autoimmune diabetes in adults [Recovering/Resolving]
